FAERS Safety Report 11419726 (Version 1)
Quarter: 2015Q3

REPORT INFORMATION
  Report Type: Spontaneous
  Country: US (occurrence: None)
  Receive Date: 20150825
  Receipt Date: 20150825
  Transmission Date: 20151125
  Serious: Yes (Disabling)
  Sender: FDA-Public Use
  Company Number: None

PATIENT
  Age: 45 Year
  Sex: Female
  Weight: 168.29 kg

DRUGS (17)
  1. NEBULIZER [Concomitant]
     Active Substance: DEVICE
  2. ATENOLOL. [Concomitant]
     Active Substance: ATENOLOL
  3. MELATONIN [Concomitant]
     Active Substance: MELATONIN
  4. PROZAC [Suspect]
     Active Substance: FLUOXETINE HYDROCHLORIDE
     Route: 048
     Dates: end: 20150810
  5. PROTONIX [Concomitant]
     Active Substance: PANTOPRAZOLE SODIUM
  6. LORAZEPAM. [Concomitant]
     Active Substance: LORAZEPAM
  7. ARBUTETOL INHALER [Concomitant]
  8. FIBER PILL [Concomitant]
  9. CLONODINE [Concomitant]
  10. LEVOTHYROXIN [Concomitant]
     Active Substance: LEVOTHYROXINE
  11. COMPLEX B [Concomitant]
     Active Substance: CALCIUM PANTOTHENATE\CYANOCOBALAMIN\NIACINAMIDE\PYRIDOXINE HYDROCHLORIDE\RIBOFLAVIN\THIAMINE MONONITRATE
  12. MIRILAX [Concomitant]
  13. FLONASE [Concomitant]
     Active Substance: FLUTICASONE PROPIONATE
  14. CIPRO [Suspect]
     Active Substance: CIPROFLOXACIN HYDROCHLORIDE
     Indication: ANXIETY
     Dosage: PROZAC AND CIPRO
     Route: 048
     Dates: end: 20150810
  15. CPAP [Concomitant]
     Active Substance: DEVICE
  16. OMEGA 3 [Concomitant]
     Active Substance: OMEGA-3 FATTY ACIDS
  17. CIPRO [Suspect]
     Active Substance: CIPROFLOXACIN HYDROCHLORIDE
     Indication: URINARY TRACT INFECTION
     Dosage: PROZAC AND CIPRO
     Route: 048
     Dates: end: 20150810

REACTIONS (13)
  - Tremor [None]
  - Pain [None]
  - Balance disorder [None]
  - Toxicity to various agents [None]
  - Arthralgia [None]
  - Dysstasia [None]
  - Diverticulum [None]
  - Tendon disorder [None]
  - Panic disorder [None]
  - Depressed level of consciousness [None]
  - Gastrointestinal disorder [None]
  - Anxiety [None]
  - Fall [None]

NARRATIVE: CASE EVENT DATE: 20080101
